FAERS Safety Report 9868388 (Version 3)
Quarter: 2014Q1

REPORT INFORMATION
  Report Type: Spontaneous
  Country: US (occurrence: US)
  Receive Date: 20140204
  Receipt Date: 20140221
  Transmission Date: 20141002
  Serious: Yes (Other)
  Sender: FDA-Public Use
  Company Number: US-JNJFOC-20140117039

PATIENT
  Age: 55 Year
  Sex: Male
  Weight: 81.65 kg

DRUGS (4)
  1. LEVAQUIN [Suspect]
     Indication: URINARY TRACT INFECTION
     Dosage: 14 DAYS
     Route: 048
     Dates: start: 20060911, end: 20060921
  2. HYDROCHLOROTHIAZID [Concomitant]
     Indication: HYPERTENSION
     Route: 065
     Dates: start: 20060921
  3. TOPROL XL [Concomitant]
     Indication: HYPERTENSION
     Route: 065
     Dates: start: 20060910
  4. ASPIRIN [Concomitant]
     Route: 048

REACTIONS (9)
  - Limb injury [Not Recovered/Not Resolved]
  - Rotator cuff syndrome [Unknown]
  - Periarthritis [Unknown]
  - Exostosis [Unknown]
  - Urticaria [Unknown]
  - Insomnia [Not Recovered/Not Resolved]
  - Pain [Not Recovered/Not Resolved]
  - Diarrhoea [Unknown]
  - Asthenia [Unknown]
